FAERS Safety Report 14669913 (Version 3)
Quarter: 2018Q2

REPORT INFORMATION
  Report Type: Spontaneous
  Country: US (occurrence: US)
  Receive Date: 20180322
  Receipt Date: 20180420
  Transmission Date: 20180711
  Serious: No
  Sender: FDA-Public Use
  Company Number: US-009507513-1803USA008727

PATIENT
  Sex: Male

DRUGS (2)
  1. DESLORATADINE. [Suspect]
     Active Substance: DESLORATADINE
     Dosage: UNK
     Route: 048
  2. CLARINEX [Suspect]
     Active Substance: DESLORATADINE
     Dosage: 5 MG, UNK
     Route: 048

REACTIONS (4)
  - Drug dose omission [Unknown]
  - No adverse event [Unknown]
  - Product availability issue [Unknown]
  - Drug effect incomplete [Unknown]
